FAERS Safety Report 13143696 (Version 1)
Quarter: 2017Q1

REPORT INFORMATION
  Report Type: Spontaneous
  Country: US (occurrence: US)
  Receive Date: 20170124
  Receipt Date: 20170124
  Transmission Date: 20170428
  Serious: No
  Sender: FDA-Public Use
  Company Number: US-BAUSCH-BL-2016-008580

PATIENT
  Age: 66 Year
  Sex: Female
  Weight: 47.22 kg

DRUGS (2)
  1. ALAWAY [Suspect]
     Active Substance: KETOTIFEN FUMARATE
     Indication: EYE ALLERGY
     Dosage: AS DIRECTED
     Route: 047
     Dates: start: 20160408, end: 20160408
  2. NYSTATIN. [Concomitant]
     Active Substance: NYSTATIN
     Indication: OROPHARYNGEAL CANDIDIASIS
     Dosage: GARGLE AND SWALLOW
     Route: 048
     Dates: start: 20160404

REACTIONS (5)
  - Eye pruritus [Not Recovered/Not Resolved]
  - Dry eye [Unknown]
  - Feeling abnormal [Unknown]
  - Eyelids pruritus [Unknown]
  - Eye irritation [Unknown]

NARRATIVE: CASE EVENT DATE: 20160408
